FAERS Safety Report 18043605 (Version 1)
Quarter: 2020Q3

REPORT INFORMATION
  Report Type: Spontaneous
  Country: US (occurrence: US)
  Receive Date: 20200717
  Receipt Date: 20200717
  Transmission Date: 20201103
  Serious: Yes (Hospitalization)
  Sender: FDA-Public Use
  Company Number: None

PATIENT
  Age: 38 Year
  Sex: Male

DRUGS (1)
  1. COLISTIMETHATE [Suspect]
     Active Substance: COLISTIMETHATE SODIUM
     Route: 055

REACTIONS (3)
  - Pyrexia [None]
  - Off label use [None]
  - Aspergillus infection [None]

NARRATIVE: CASE EVENT DATE: 20200525
